FAERS Safety Report 15621036 (Version 2)
Quarter: 2018Q4

REPORT INFORMATION
  Report Type: Report from Study
  Country: US (occurrence: US)
  Receive Date: 20181115
  Receipt Date: 20181121
  Transmission Date: 20190205
  Serious: No
  Sender: FDA-Public Use
  Company Number: US-ALEXION PHARMACEUTICALS INC.-A201814895

PATIENT
  Age: 4 Year
  Sex: Male
  Weight: 16.6 kg

DRUGS (1)
  1. STRENSIQ [Suspect]
     Active Substance: ASFOTASE ALFA
     Indication: HYPOPHOSPHATASIA
     Dosage: 2 MG/KG, TIW
     Route: 058
     Dates: start: 201603, end: 201808

REACTIONS (2)
  - Treatment noncompliance [Recovered/Resolved]
  - Osteopetrosis [Not Recovered/Not Resolved]

NARRATIVE: CASE EVENT DATE: 20181101
